FAERS Safety Report 7789692-7 (Version None)
Quarter: 2011Q3

REPORT INFORMATION
  Report Type: 
  Country: None (occurrence: None)
  Receive Date: 20110930
  Receipt Date: 20110927
  Transmission Date: 20111222
  Serious: Yes (Hospitalization)
  Sender: FDA-Public Use
  Company Number: KR-BRISTOL-MYERS SQUIBB COMPANY-16054827

PATIENT
  Age: 72 Year
  Sex: Male
  Weight: 62 kg

DRUGS (6)
  1. CISPLATIN [Suspect]
     Indication: NON-SMALL CELL LUNG CANCER
     Dosage: LAST DOSE ON 22AUG2011, 14SEP11.
     Route: 065
     Dates: start: 20110617
  2. NECITUMUMAB [Suspect]
     Indication: NON-SMALL CELL LUNG CANCER
     Dosage: LAST DOSE ON 22AUG2011,14SEP11
     Route: 065
     Dates: start: 20110617
  3. PANTOPRAZOLE SODIUM [Concomitant]
  4. GEMCITABINE HYDROCHLORIDE [Suspect]
     Indication: NON-SMALL CELL LUNG CANCER
     Dosage: LAST DOSE ON 22AUG2011,14SEP11
     Route: 065
     Dates: start: 20110617
  5. ALMAGEL [Concomitant]
  6. MEGACE [Concomitant]

REACTIONS (1)
  - HAEMORRHAGE [None]
